FAERS Safety Report 6135515-1 (Version None)
Quarter: 2009Q1

REPORT INFORMATION
  Report Type: 
  Country: None (occurrence: None)
  Receive Date: 20090327
  Receipt Date: 20090319
  Transmission Date: 20090719
  Serious: Yes (Hospitalization)
  Sender: FDA-Public Use
  Company Number: B0565893A

PATIENT
  Sex: Female

DRUGS (7)
  1. COMBIVIR [Suspect]
     Indication: HIV INFECTION
     Dosage: 1TAB TWICE PER DAY
     Route: 048
     Dates: start: 20070701, end: 20080131
  2. BACTRIM [Suspect]
     Indication: PROPHYLAXIS
     Dosage: 1UNIT PER DAY
     Route: 048
     Dates: start: 20070719, end: 20080131
  3. PRAZIQUANTEL [Concomitant]
     Dates: start: 20070727
  4. ANTIHISTAMINE [Concomitant]
     Route: 048
  5. RETROVIR [Concomitant]
     Indication: HIV INFECTION
     Route: 048
     Dates: start: 20070701, end: 20070801
  6. VIRACEPT [Concomitant]
     Dates: start: 20070701, end: 20070801
  7. KALETRA [Concomitant]
     Indication: HIV INFECTION
     Dates: start: 20070802

REACTIONS (3)
  - EOSINOPHILIA [None]
  - GENERAL PHYSICAL HEALTH DETERIORATION [None]
  - NEUTROPENIA [None]
